FAERS Safety Report 6454775-0 (Version None)
Quarter: 2009Q4

REPORT INFORMATION
  Report Type: 
  Country: None (occurrence: None)
  Receive Date: 20091118
  Receipt Date: 20090910
  Transmission Date: 20100525
  Serious: Yes (Other)
  Sender: FDA-Public Use
  Company Number: 2009-197170-NL

PATIENT
  Age: 35 Year
  Sex: Female

DRUGS (4)
  1. PUREGON (FOLLITROPIN BETA) [Suspect]
     Indication: ASSISTED FERTILISATION
     Dosage: 75 IU, QD, SC, 100 IU, QD, SC, 116 IU, QD, SC
     Route: 058
     Dates: start: 20090406, end: 20090424
  2. PUREGON (FOLLITROPIN BETA) [Suspect]
     Indication: ASSISTED FERTILISATION
     Dosage: 75 IU, QD, SC, 100 IU, QD, SC, 116 IU, QD, SC
     Route: 058
     Dates: start: 20090509, end: 20090520
  3. PUREGON (FOLLITROPIN BETA) [Suspect]
     Indication: ASSISTED FERTILISATION
     Dosage: 75 IU, QD, SC, 100 IU, QD, SC, 116 IU, QD, SC
     Route: 058
     Dates: start: 20090521, end: 20090527
  4. PUREGON PEN [Concomitant]

REACTIONS (1)
  - SYSTEMIC LUPUS ERYTHEMATOSUS [None]
